FAERS Safety Report 24978400 (Version 1)
Quarter: 2025Q1

REPORT INFORMATION
  Report Type: Spontaneous
  Country: US (occurrence: US)
  Receive Date: 20250217
  Receipt Date: 20250217
  Transmission Date: 20250408
  Serious: No
  Sender: ABBVIE
  Company Number: US-ABBVIE-6131214

PATIENT
  Age: 82 Year
  Sex: Female
  Weight: 45.359 kg

DRUGS (1)
  1. CREON [Suspect]
     Active Substance: PANCRELIPASE AMYLASE\PANCRELIPASE LIPASE\PANCRELIPASE PROTEASE
     Indication: Pancreatic carcinoma
     Route: 048

REACTIONS (5)
  - Off label use [Unknown]
  - Unevaluable event [Unknown]
  - Off label use [Unknown]
  - Product use complaint [Unknown]
  - Product size issue [Unknown]
